FAERS Safety Report 17038638 (Version 1)
Quarter: 2019Q4

REPORT INFORMATION
  Report Type: Spontaneous
  Country: US (occurrence: US)
  Receive Date: 20191115
  Receipt Date: 20191115
  Transmission Date: 20200122
  Serious: No
  Sender: FDA-Public Use
  Company Number: US-PFIZER INC-2019492713

PATIENT
  Age: 58 Year

DRUGS (1)
  1. BOSUTINIB [Suspect]
     Active Substance: BOSUTINIB
     Dosage: 500 MG, 1X/DAY

REACTIONS (3)
  - Rash [Recovered/Resolved]
  - Diarrhoea [Recovering/Resolving]
  - Alanine aminotransferase increased [Unknown]
